FAERS Safety Report 10046675 (Version 1)
Quarter: 2014Q1

REPORT INFORMATION
  Report Type: Spontaneous
  Country: GB (occurrence: GB)
  Receive Date: 20140331
  Receipt Date: 20140331
  Transmission Date: 20141002
  Serious: Yes (Other)
  Sender: FDA-Public Use
  Company Number: GB-ROCHE-1373971

PATIENT
  Age: 53 Year
  Sex: Female
  Weight: 69 kg

DRUGS (3)
  1. NAPROXEN [Suspect]
     Indication: PAIN
     Route: 048
  2. CITALOPRAM [Concomitant]
     Route: 065
  3. CO-CODAMOL [Concomitant]
     Route: 065

REACTIONS (1)
  - Aphthous stomatitis [Recovered/Resolved with Sequelae]
